FAERS Safety Report 9309916 (Version 1)
Quarter: 2013Q2

REPORT INFORMATION
  Report Type: Spontaneous
  Country: RU (occurrence: RU)
  Receive Date: 20130526
  Receipt Date: 20130526
  Transmission Date: 20140414
  Serious: Yes (Other)
  Sender: FDA-Public Use
  Company Number: RU-BRISTOL-MYERS SQUIBB COMPANY-18909929

PATIENT
  Sex: 0

DRUGS (3)
  1. REYATAZ [Suspect]
  2. VIDEX [Suspect]
  3. EPIVIR [Suspect]

REACTIONS (3)
  - Mental disorder [Unknown]
  - Blood creatine phosphokinase increased [Unknown]
  - Myalgia [Unknown]
